FAERS Safety Report 25664150 (Version 3)
Quarter: 2025Q3

REPORT INFORMATION
  Report Type: Spontaneous
  Country: GB (occurrence: GB)
  Receive Date: 20250811
  Receipt Date: 20250828
  Transmission Date: 20251020
  Serious: Yes (Hospitalization)
  Sender: MYLAN
  Company Number: GB-MYLANLABS-2025M1067614

PATIENT
  Age: 18 Year
  Sex: Female
  Weight: 99.1 kg

DRUGS (16)
  1. CLOZARIL [Suspect]
     Active Substance: CLOZAPINE
     Indication: Schizophrenia
  2. CLOZARIL [Suspect]
     Active Substance: CLOZAPINE
     Dosage: 200 MILLIGRAM, PM (ON (EVERY NIGHT))
     Dates: start: 20250623
  3. PROPRANOLOL [Concomitant]
     Active Substance: PROPRANOLOL HYDROCHLORIDE
     Dosage: 80 MILLIGRAM, QD (OD)
  4. DOXAZOSIN [Concomitant]
     Active Substance: DOXAZOSIN MESYLATE
     Dosage: 3 MILLIGRAM, PM (ON (EVERY NIGHT))
  5. FLUOXETINE [Concomitant]
     Active Substance: FLUOXETINE HYDROCHLORIDE
     Dosage: 60 MILLIGRAM, QD (OD (EVERY NIGHT))
  6. METFORMIN [Concomitant]
     Active Substance: METFORMIN HYDROCHLORIDE
     Dosage: 500 MILLIGRAM, BID (BD (TWICE DAILY))
  7. QUETIAPINE [Concomitant]
     Active Substance: QUETIAPINE
  8. QUETIAPINE [Concomitant]
     Active Substance: QUETIAPINE
  9. QUETIAPINE [Concomitant]
     Active Substance: QUETIAPINE
  10. SCOPOLAMINE HYDROBROMIDE [Concomitant]
     Active Substance: SCOPOLAMINE HYDROBROMIDE
     Dosage: 300 MICROGRAM, TID (THREE TIME DAILY)
  11. LORAZEPAM [Concomitant]
     Active Substance: LORAZEPAM
  12. GLUCAGON [Concomitant]
     Active Substance: GLUCAGON
  13. PROMETHAZINE [Concomitant]
     Active Substance: PROMETHAZINE HYDROCHLORIDE
  14. GLUCAGON [Concomitant]
     Active Substance: GLUCAGON
  15. NOVORAPID [Concomitant]
     Active Substance: INSULIN ASPART
  16. TRESIBA [Concomitant]
     Active Substance: INSULIN DEGLUDEC
     Dosage: UNK, PM (40 UNITS ON (EVERY NIGHT))

REACTIONS (2)
  - Hospitalisation [Unknown]
  - Weight decreased [Unknown]
